FAERS Safety Report 4648666-5 (Version None)
Quarter: 2005Q2

REPORT INFORMATION
  Report Type: 
  Country: None (occurrence: None)
  Receive Date: 20050427
  Receipt Date: 20050323
  Transmission Date: 20051028
  Serious: Yes (Other)
  Sender: FDA-Public Use
  Company Number: 211943

PATIENT
  Age: 31 Year
  Sex: Female

DRUGS (1)
  1. MABTHERA (RITUXIMAB) CONC FOR SOLUTION FOR INFUSION [Suspect]
     Indication: LYMPHOMA
     Dosage: INTRAVENOUS
     Route: 042
     Dates: start: 20050113, end: 20050113

REACTIONS (7)
  - ANAPHYLACTIC SHOCK [None]
  - CYANOSIS [None]
  - INFUSION RELATED REACTION [None]
  - LARYNGOSPASM [None]
  - LYMPHOMA [None]
  - MALIGNANT NEOPLASM PROGRESSION [None]
  - RESPIRATORY DISTRESS [None]
